FAERS Safety Report 15986473 (Version 2)
Quarter: 2019Q1

REPORT INFORMATION
  Report Type: Spontaneous
  Country: NL (occurrence: NL)
  Receive Date: 20190220
  Receipt Date: 20190306
  Transmission Date: 20190418
  Serious: Yes (Hospitalization)
  Sender: FDA-Public Use
  Company Number: NL-TEVA-2019-NL-1014748

PATIENT
  Age: 63 Year
  Sex: Male
  Weight: 84 kg

DRUGS (2)
  1. CAPECITABINE FILMOMHULDE TABLET, 500 MG (MILLIGRAM) [Suspect]
     Active Substance: CAPECITABINE
     Indication: GASTROINTESTINAL CARCINOMA
     Dosage: 4200 MILLIGRAM DAILY;
     Dates: start: 20181129
  2. OXALIPLATIN. [Concomitant]
     Active Substance: OXALIPLATIN

REACTIONS (1)
  - Chest discomfort [Not Recovered/Not Resolved]

NARRATIVE: CASE EVENT DATE: 20181209
